FAERS Safety Report 13932374 (Version 12)
Quarter: 2018Q3

REPORT INFORMATION
  Report Type: Spontaneous
  Country: PT (occurrence: PT)
  Receive Date: 20170904
  Receipt Date: 20180705
  Transmission Date: 20181010
  Serious: Yes (Life-Threatening, Hospitalization)
  Sender: FDA-Public Use
  Company Number: PT-ROCHE-1986942

PATIENT
  Age: 70 Year
  Sex: Female

DRUGS (19)
  1. SIMVASTATIN. [Concomitant]
     Active Substance: SIMVASTATIN
     Indication: PRODUCT USED FOR UNKNOWN INDICATION
     Dosage: UNK
     Route: 065
  2. VALPROIC ACID. [Suspect]
     Active Substance: VALPROIC ACID
     Indication: OVERDOSE
     Route: 065
  3. CLOPIDOGREL [Concomitant]
     Active Substance: CLOPIDOGREL BISULFATE
     Indication: PRODUCT USED FOR UNKNOWN INDICATION
     Route: 065
  4. BROMAZEPAM [Suspect]
     Active Substance: BROMAZEPAM
     Indication: OVERDOSE
  5. PRACET [Suspect]
     Active Substance: VENLAFAXINE HYDROCHLORIDE
     Indication: ANTIDEPRESSANT THERAPY
     Route: 065
  6. DIAZEPAM. [Suspect]
     Active Substance: DIAZEPAM
     Indication: ANTIDEPRESSANT THERAPY
     Dosage: UNKNOWN DOSE
     Route: 065
  7. LEVOTHYROXINE SODIUM. [Concomitant]
     Active Substance: LEVOTHYROXINE SODIUM
     Indication: PRODUCT USED FOR UNKNOWN INDICATION
  8. DULOXETINE. [Suspect]
     Active Substance: DULOXETINE
     Indication: OVERDOSE
     Dosage: DOSAGE: {1.95 NG /ML
     Route: 065
  9. CLOMIPRAMINE HYDROCHLORIDE. [Suspect]
     Active Substance: CLOMIPRAMINE HYDROCHLORIDE
     Indication: ANTIDEPRESSANT THERAPY
     Route: 065
  10. DIAZEPAM. [Suspect]
     Active Substance: DIAZEPAM
     Indication: ANTIDEPRESSANT THERAPY
  11. TRIHEXYPHENIDYL [Suspect]
     Active Substance: TRIHEXYPHENIDYL
     Indication: OVERDOSE
     Route: 065
  12. IDEBENONE [Concomitant]
     Active Substance: IDEBENONE
     Indication: PRODUCT USED FOR UNKNOWN INDICATION
     Dosage: UNK
     Route: 065
  13. DULOXETINE. [Suspect]
     Active Substance: DULOXETINE
     Indication: ANTIDEPRESSANT THERAPY
     Route: 065
  14. PRACET [Suspect]
     Active Substance: VENLAFAXINE HYDROCHLORIDE
     Indication: OVERDOSE
  15. CLOMIPRAMINE HYDROCHLORIDE. [Suspect]
     Active Substance: CLOMIPRAMINE HYDROCHLORIDE
     Indication: OVERDOSE
  16. BROMAZEPAM [Suspect]
     Active Substance: BROMAZEPAM
     Indication: ANTIDEPRESSANT THERAPY
     Route: 065
  17. LORAZEPAM. [Suspect]
     Active Substance: LORAZEPAM
     Indication: ANTIDEPRESSANT THERAPY
     Route: 065
  18. LORAZEPAM. [Suspect]
     Active Substance: LORAZEPAM
     Indication: OVERDOSE
  19. NORTRIPTYLINE [Concomitant]
     Active Substance: NORTRIPTYLINE
     Indication: PRODUCT USED FOR UNKNOWN INDICATION
     Route: 065

REACTIONS (8)
  - Respiratory depression [Unknown]
  - Acute kidney injury [Unknown]
  - Toxicity to various agents [Unknown]
  - Coma [Unknown]
  - Immunology test abnormal [Unknown]
  - Overdose [Unknown]
  - Hyperchloraemia [Unknown]
  - Hypernatraemia [Unknown]
